FAERS Safety Report 24427033 (Version 1)
Quarter: 2024Q4

REPORT INFORMATION
  Report Type: Spontaneous
  Country: CA (occurrence: CA)
  Receive Date: 20241011
  Receipt Date: 20241011
  Transmission Date: 20250115
  Serious: Yes (Life-Threatening, Hospitalization)
  Sender: B BRAUN
  Company Number: CA-B.Braun Medical Inc.-2162843

PATIENT
  Age: 29 Year
  Sex: Female
  Weight: 76 kg

DRUGS (14)
  1. HEPARIN SODIUM IN DEXTROSE [Suspect]
     Active Substance: HEPARIN SODIUM
     Indication: Thrombosis
  2. ACETAMINOPHEN [Concomitant]
     Active Substance: ACETAMINOPHEN
  3. VANCOMYCIN [Concomitant]
     Active Substance: VANCOMYCIN
  4. PROPOFOL [Concomitant]
     Active Substance: PROPOFOL
  5. POLYETHYLENE GLYCOL [Concomitant]
     Active Substance: POLYETHYLENE GLYCOL
  6. NOREPINEPHRINE [Concomitant]
     Active Substance: NOREPINEPHRINE\NOREPINEPHRINE BITARTRATE
  7. Midazolam ?injection [Concomitant]
  8. MEROPENEM [Concomitant]
     Active Substance: MEROPENEM
  9. LEVETIRACETAM [Concomitant]
     Active Substance: LEVETIRACETAM
  10. LANSOPRAZOLE [Concomitant]
     Active Substance: LANSOPRAZOLE
  11. HYDROCORTISONE [Concomitant]
     Active Substance: HYDROCORTISONE
  12. FENTANYL [Concomitant]
     Active Substance: FENTANYL
  13. Electrolytes LIQ [Concomitant]
  14. ASPIRIN [Concomitant]
     Active Substance: ASPIRIN

REACTIONS (4)
  - Haematoma muscle [Not Recovered/Not Resolved]
  - Transfusion [Not Recovered/Not Resolved]
  - Uterine haemorrhage [Not Recovered/Not Resolved]
  - Haemoperitoneum [Not Recovered/Not Resolved]
